FAERS Safety Report 8105172-3 (Version None)
Quarter: 2012Q1

REPORT INFORMATION
  Report Type: 
  Country: None (occurrence: None)
  Receive Date: 20120201
  Receipt Date: 20120124
  Transmission Date: 20120608
  Serious: No
  Sender: FDA-Public Use
  Company Number: US-PFIZER INC-2012019878

PATIENT
  Sex: Female
  Weight: 68.1 kg

DRUGS (5)
  1. CHANTIX [Suspect]
     Indication: SMOKING CESSATION THERAPY
     Dosage: 0.5 MG, DAILY
     Route: 048
     Dates: start: 20111231, end: 20120101
  2. CHANTIX [Suspect]
     Dosage: UNK
     Dates: start: 20120101
  3. NAPROXEN (ALEVE) [Concomitant]
     Indication: BACK PAIN
     Dosage: UNK; AS NEEDED FOR PAIN
  4. XANAX [Concomitant]
     Indication: ANXIETY
     Dosage: 1 MG, 2X/DAY
     Route: 048
  5. XANAX [Concomitant]
     Indication: PANIC ATTACK

REACTIONS (5)
  - MOOD SWINGS [None]
  - GLOSSODYNIA [None]
  - AGITATION [None]
  - IMPAIRED DRIVING ABILITY [None]
  - PAIN [None]
